FAERS Safety Report 18681753 (Version 1)
Quarter: 2020Q4

REPORT INFORMATION
  Report Type: Report from Study
  Country: CA (occurrence: CA)
  Receive Date: 20201230
  Receipt Date: 20201230
  Transmission Date: 20210114
  Serious: Yes (Other)
  Sender: FDA-Public Use
  Company Number: PHHY2017CA129986

PATIENT
  Sex: Male

DRUGS (1)
  1. GILENYA [Suspect]
     Active Substance: FINGOLIMOD HYDROCHLORIDE
     Indication: SECONDARY PROGRESSIVE MULTIPLE SCLEROSIS
     Dosage: UNK
     Route: 048
     Dates: start: 20111206

REACTIONS (7)
  - Central nervous system lesion [Unknown]
  - Expanded disability status scale score increased [Unknown]
  - Fatigue [Unknown]
  - Product use in unapproved indication [Unknown]
  - Gait disturbance [Unknown]
  - General physical health deterioration [Unknown]
  - Muscular weakness [Unknown]
